FAERS Safety Report 15953374 (Version 1)
Quarter: 2019Q1

REPORT INFORMATION
  Report Type: Spontaneous
  Country: US (occurrence: US)
  Receive Date: 20190212
  Receipt Date: 20190212
  Transmission Date: 20190417
  Serious: Yes (Other)
  Sender: FDA-Public Use
  Company Number: US-JNJFOC-20190211860

PATIENT

DRUGS (1)
  1. BENADRYL [Suspect]
     Active Substance: DIPHENHYDRAMINE HYDROCHLORIDE
     Indication: EUPHORIC MOOD
     Route: 065

REACTIONS (3)
  - Product use in unapproved indication [Unknown]
  - Euphoric mood [Unknown]
  - Drug dependence [Unknown]
